FAERS Safety Report 9256246 (Version 1)
Quarter: 2013Q2

REPORT INFORMATION
  Report Type: Spontaneous
  Country: US (occurrence: US)
  Receive Date: 20130425
  Receipt Date: 20130425
  Transmission Date: 20140414
  Serious: Yes (Other)
  Sender: FDA-Public Use
  Company Number: US-AMGEN-USASP2012050711

PATIENT
  Age: 80 Year
  Sex: Female

DRUGS (3)
  1. NEULASTA [Suspect]
     Indication: NEUTROPENIA
     Dosage: 6 MG, UNK
     Dates: start: 2012
  2. NEUPOGEN [Suspect]
     Indication: NEUTROPENIA
  3. VIDAZA [Concomitant]

REACTIONS (1)
  - Rash [Not Recovered/Not Resolved]
